FAERS Safety Report 13387650 (Version 1)
Quarter: 2017Q1

REPORT INFORMATION
  Report Type: Spontaneous
  Country: US (occurrence: US)
  Receive Date: 20170330
  Receipt Date: 20170330
  Transmission Date: 20170429
  Serious: No
  Sender: FDA-Public Use
  Company Number: US-TEVA-746130ACC

PATIENT
  Sex: Female

DRUGS (2)
  1. AMOX TR K CLV 875 125 [Concomitant]
     Indication: GINGIVITIS
  2. PLAN B ONE-STEP [Suspect]
     Active Substance: LEVONORGESTREL
     Indication: POST COITAL CONTRACEPTION
     Dates: start: 20170301, end: 20170301

REACTIONS (1)
  - Fatigue [Not Recovered/Not Resolved]
